FAERS Safety Report 6144678-3 (Version None)
Quarter: 2009Q2

REPORT INFORMATION
  Report Type: 
  Country: None (occurrence: None)
  Receive Date: 20090406
  Receipt Date: 20090331
  Transmission Date: 20091009
  Serious: Yes (Other)
  Sender: FDA-Public Use
  Company Number: B0561730A

PATIENT
  Sex: Male
  Weight: 40 kg

DRUGS (6)
  1. RELENZA [Suspect]
     Indication: INFLUENZA
     Dosage: 10MG TWICE PER DAY
     Route: 055
     Dates: start: 20090216, end: 20090219
  2. HOKUNALIN [Suspect]
     Indication: BRONCHITIS
     Dosage: 1MG PER DAY
     Route: 062
     Dates: start: 20090216, end: 20090219
  3. MEDICON [Suspect]
     Indication: UPPER RESPIRATORY TRACT INFLAMMATION
     Dosage: 30MG THREE TIMES PER DAY
     Route: 048
     Dates: start: 20090215, end: 20090219
  4. LYSOZYME HYDROCHLORIDE [Suspect]
     Indication: BRONCHITIS
     Dosage: 90MG THREE TIMES PER DAY
     Route: 048
     Dates: start: 20090215, end: 20090219
  5. TRANEXAMIC ACID [Suspect]
     Indication: UPPER RESPIRATORY TRACT INFLAMMATION
     Route: 048
     Dates: start: 20090215, end: 20090219
  6. FLOMOX [Suspect]
     Indication: BRONCHITIS
     Dosage: 100MG THREE TIMES PER DAY
     Route: 048
     Dates: start: 20090215, end: 20090219

REACTIONS (3)
  - ABNORMAL BEHAVIOUR [None]
  - AGGRESSION [None]
  - PYREXIA [None]
